FAERS Safety Report 4987700-X (Version None)
Quarter: 2006Q1

REPORT INFORMATION
  Report Type: 
  Country: None (occurrence: None)
  Receive Date: 20060309
  Receipt Date: 20050517
  Transmission Date: 20060701
  Serious: Yes (Other)
  Sender: FDA-Public Use
  Company Number: 377435

PATIENT

DRUGS (3)
  1. ACCUTANE [Suspect]
     Indication: ACNE
  2. AMNESTEEM [Suspect]
     Indication: ACNE
     Dates: start: 20040324, end: 20040705
  3. VITAMIN A (NATURAL) CAP [Concomitant]

REACTIONS (3)
  - DRUG EXPOSURE DURING PREGNANCY [None]
  - NO ADVERSE EFFECT [None]
  - PREGNANCY [None]
